FAERS Safety Report 8069240 (Version 2)
Quarter: 2012Q4

REPORT INFORMATION
  Report Type: Report from Study
  Country: SE (occurrence: SE)
  Receive Date: 20110804
  Receipt Date: 20121119
  Transmission Date: 20130627
  Serious: Yes (Hospitalization)
  Sender: FDA-Public Use
  Company Number: SE-GLAXOSMITHKLINE-B0736825A

PATIENT
  Age: 53 Year
  Sex: Female
  Weight: 84 kg

DRUGS (8)
  1. LAPATINIB [Suspect]
     Indication: BREAST CANCER
     Dosage: 1250MG Per day
     Route: 048
     Dates: start: 20110413
  2. CAPECITABINE [Suspect]
     Indication: BREAST CANCER
     Dosage: 1800MG Twice per day
     Route: 048
     Dates: start: 20110413
  3. TRASTUZUMAB [Suspect]
     Indication: BREAST CANCER
     Route: 042
     Dates: start: 20121011
  4. FURIX [Concomitant]
     Indication: OEDEMA
  5. FELODIPIN [Concomitant]
     Indication: HYPERTONIA
  6. MORPHINE HYDROCHLORIDE [Concomitant]
     Indication: PAIN
     Dosage: 20MG per day
  7. PAMOL [Concomitant]
     Indication: PAIN
     Dosage: 2G per day
  8. FRAGMIN [Concomitant]
     Indication: DEEP VEIN THROMBOSIS
     Dosage: 1000UD per day
     Dates: start: 20090226, end: 20110929

REACTIONS (1)
  - Urticaria [Recovered/Resolved]
